FAERS Safety Report 15674729 (Version 1)
Quarter: 2018Q4

REPORT INFORMATION
  Report Type: Spontaneous
  Country: US (occurrence: US)
  Receive Date: 20181129
  Receipt Date: 20181129
  Transmission Date: 20190205
  Serious: Yes (Disabling, Other)
  Sender: FDA-Public Use
  Company Number: None

PATIENT
  Sex: Female
  Weight: 81.65 kg

DRUGS (1)
  1. NEXPLANON [Suspect]
     Active Substance: ETONOGESTREL

REACTIONS (12)
  - Renal pain [None]
  - Abdominal pain lower [None]
  - Abdominal distension [None]
  - Dyspnoea [None]
  - Chest pain [None]
  - Insomnia [None]
  - Breast pain [None]
  - Back pain [None]
  - Amenorrhoea [None]
  - Biliary colic [None]
  - Loss of personal independence in daily activities [None]
  - Weight increased [None]
